FAERS Safety Report 23264959 (Version 1)
Quarter: 2023Q4

REPORT INFORMATION
  Report Type: Spontaneous
  Country: US (occurrence: US)
  Receive Date: 20231206
  Receipt Date: 20231206
  Transmission Date: 20240110
  Serious: No
  Sender: FDA-Public Use
  Company Number: US-STERISCIENCE B.V.-2023-ST-000847

PATIENT
  Age: 28 Year
  Sex: Female

DRUGS (4)
  1. BUPIVACAINE [Suspect]
     Active Substance: BUPIVACAINE
     Indication: Epidural analgesia
     Dosage: DOSAGE: INFUSION AT RATE OF 12ML/H WAS ADMINISTERED FOLLOWED BY 4ML OF EPIDURAL BOLUS DOSE. THE RATE
  2. LIDOCAINE [Suspect]
     Active Substance: LIDOCAINE
     Indication: Epidural analgesia
     Dosage: 3 MILLILITER
  3. EPINEPHRINE [Suspect]
     Active Substance: EPINEPHRINE
     Indication: Epidural analgesia
     Dosage: DOSE: 1:200,000
  4. FENTANYL [Suspect]
     Active Substance: FENTANYL\FENTANYL CITRATE
     Indication: Epidural analgesia
     Dosage: 2 MCG/ML INFUSION AT RATE OF 12ML/H WAS ADMINISTERED FOLLOWED BY 4ML OF EPIDURAL BOLUS DOSE. THE RAT

REACTIONS (2)
  - Maternal exposure during pregnancy [Unknown]
  - No adverse event [Unknown]
